FAERS Safety Report 8574128-9 (Version None)
Quarter: 2012Q3

REPORT INFORMATION
  Report Type: 
  Country: None (occurrence: None)
  Receive Date: 20120806
  Receipt Date: 20120726
  Transmission Date: 20120928
  Serious: Yes (Other)
  Sender: FDA-Public Use
  Company Number: JP-FRI-1000037584

PATIENT
  Age: 18 Year
  Sex: Female

DRUGS (8)
  1. LENDORMIN [Concomitant]
     Route: 048
  2. DEPAS [Concomitant]
     Route: 048
  3. CYMBALTA [Concomitant]
     Route: 048
  4. ABILIFY [Concomitant]
     Route: 048
  5. HALCION [Concomitant]
     Route: 048
  6. SOMELIN [Concomitant]
     Route: 048
  7. LEXAPRO [Suspect]
     Dosage: 20 MG
     Route: 048
  8. EVAMYL [Concomitant]
     Route: 048

REACTIONS (1)
  - INTENTIONAL SELF-INJURY [None]
